FAERS Safety Report 4885806-7 (Version None)
Quarter: 2006Q1

REPORT INFORMATION
  Report Type: 
  Country: None (occurrence: None)
  Receive Date: 20060117
  Receipt Date: 20060106
  Transmission Date: 20060701
  Serious: Yes (Other)
  Sender: FDA-Public Use
  Company Number: S06-UKI-00033-01

PATIENT
  Age: 32 Year
  Sex: Female

DRUGS (3)
  1. CIPRALEX (ESCITALOPRAM) [Suspect]
     Indication: DEPRESSION
     Dosage: 20 MG QD PO
     Route: 048
     Dates: start: 20050805, end: 20050928
  2. CIPRALEX (ESCITALOPRAM) [Suspect]
     Indication: DEPRESSION
     Dosage: 20 MG QD PO
     Route: 048
     Dates: start: 20060928
  3. BISOPROLOL [Concomitant]

REACTIONS (4)
  - ABNORMAL DREAMS [None]
  - EMOTIONAL DISTRESS [None]
  - FEAR [None]
  - HALLUCINATION, VISUAL [None]
